FAERS Safety Report 9343262 (Version 2)
Quarter: 2013Q4

REPORT INFORMATION
  Report Type: Spontaneous
  Country: US (occurrence: US)
  Receive Date: 20130611
  Receipt Date: 20131107
  Transmission Date: 20140711
  Serious: No
  Sender: FDA-Public Use
  Company Number: US-B.I. PHARMACEUTICALS,INC./RIDGEFIELD-2013-BI-15516BP

PATIENT
  Age: 59 Year
  Sex: Female
  Weight: 48.53 kg

DRUGS (12)
  1. COMBIVENT [Suspect]
     Indication: CHRONIC OBSTRUCTIVE PULMONARY DISEASE
     Dosage: STRENGTH: 18 MCG / 103 MCG; DAILY DOSE: 144MCG/824MCG
     Route: 055
     Dates: start: 2003
  2. VITAMIN C [Concomitant]
     Route: 048
  3. SYMBICORT [Concomitant]
     Indication: CHRONIC OBSTRUCTIVE PULMONARY DISEASE
     Dosage: STRENGTH: 160MCG/4.5MCG; DAILY DOSE: 640MCG/18MCG
     Route: 055
  4. SYMBICORT [Concomitant]
     Dosage: 4 PUF
     Route: 055
  5. LOVASTATIN [Concomitant]
     Indication: BLOOD CHOLESTEROL INCREASED
     Dosage: 40 MG
     Route: 048
  6. TEMAZEPAM [Concomitant]
     Indication: INSOMNIA
     Route: 048
  7. NORCO [Concomitant]
     Indication: FIBROMYALGIA
     Dosage: STRENGTH: 7.5 MG/325 MG, DAILY DOSE: 30 MG/1300 MG
     Route: 048
  8. NORCO [Concomitant]
     Indication: ARTHRALGIA
  9. POTASSIUM CHLORIDE [Concomitant]
     Indication: BLOOD POTASSIUM DECREASED
     Route: 048
  10. VITAMIN D [Concomitant]
     Route: 048
  11. DIAZEPAM [Concomitant]
     Indication: SLEEP DISORDER
     Dosage: 4 MG
     Route: 048
  12. POSTASSIUM [Concomitant]
     Indication: BLOOD POTASSIUM DECREASED
     Dosage: 30 MEQ
     Route: 048

REACTIONS (6)
  - Dyspnoea [Not Recovered/Not Resolved]
  - Dyspnoea exertional [Not Recovered/Not Resolved]
  - Hypoxia [Recovered/Resolved]
  - Contusion [Unknown]
  - Nerve compression [Recovered/Resolved]
  - Drug effect decreased [Not Recovered/Not Resolved]
